FAERS Safety Report 7320020-7 (Version None)
Quarter: 2011Q1

REPORT INFORMATION
  Report Type: 
  Country: None (occurrence: None)
  Receive Date: 20110228
  Receipt Date: 20110216
  Transmission Date: 20110831
  Serious: Yes (Other)
  Sender: FDA-Public Use
  Company Number: US-BAYER-2011-015877

PATIENT
  Sex: Female

DRUGS (2)
  1. MIRENA [Suspect]
     Dosage: UNK
     Dates: start: 20101230
  2. MIRENA [Suspect]
     Dosage: UNK

REACTIONS (7)
  - AMENORRHOEA [None]
  - DEVICE DISLOCATION [None]
  - COMPLICATION OF DEVICE REMOVAL [None]
  - HEADACHE [None]
  - METRORRHAGIA [None]
  - MEDICAL DEVICE COMPLICATION [None]
  - COMPLICATION OF DEVICE INSERTION [None]
